FAERS Safety Report 25163399 (Version 2)
Quarter: 2025Q2

REPORT INFORMATION
  Report Type: Report from Study
  Country: FR (occurrence: FR)
  Receive Date: 20250404
  Receipt Date: 20250422
  Transmission Date: 20250717
  Serious: Yes (Disabling)
  Sender: UCB
  Company Number: FR-UCBSA-2024053023

PATIENT
  Sex: Female

DRUGS (12)
  1. BIMEKIZUMAB [Suspect]
     Active Substance: BIMEKIZUMAB
     Indication: Psoriasis
     Dates: end: 20240615
  2. CHOLECALCIFEROL [Concomitant]
     Active Substance: CHOLECALCIFEROL
     Indication: Product used for unknown indication
     Dosage: FORMULATION: SOLUTION, 10000 INTERNATIONAL UNIT, MONTHLY (QM)
     Route: 048
  3. CITALOPRAM HYDROBROMIDE [Concomitant]
     Active Substance: CITALOPRAM HYDROBROMIDE
     Indication: Depression
     Dosage: 30 MILLIGRAM, ONCE DAILY (QD) (BEDTIME)
     Route: 048
     Dates: start: 2014
  4. AUBAGIO [Concomitant]
     Active Substance: TERIFLUNOMIDE
     Indication: Multiple sclerosis
     Dosage: 14 MILLIGRAM, ONCE DAILY (QD)
     Route: 048
     Dates: start: 2021
  5. XANAX [Concomitant]
     Active Substance: ALPRAZOLAM
     Indication: Product used for unknown indication
  6. CEPHALEXIN [Concomitant]
     Active Substance: CEPHALEXIN
     Indication: Product used for unknown indication
  7. FLUCONAZOLE [Concomitant]
     Active Substance: FLUCONAZOLE
     Indication: Product used for unknown indication
  8. CHLORHEXIDINE GLUCONATE\CHLOROCRESOL\HEXAMIDINE DIISETHIONATE [Concomitant]
     Active Substance: CHLORHEXIDINE GLUCONATE\CHLOROCRESOL\HEXAMIDINE DIISETHIONATE
     Indication: Product used for unknown indication
  9. DIPROLENE [Concomitant]
     Active Substance: BETAMETHASONE DIPROPIONATE
     Indication: Product used for unknown indication
  10. CEPHALEXIN [Concomitant]
     Active Substance: CEPHALEXIN
     Indication: Prophylaxis
     Dosage: 1 GRAM, 2X/DAY (BID)
     Route: 048
     Dates: start: 20240618
  11. CODEXIAL COLD CREAM [Concomitant]
     Indication: Psoriasis
     Route: 061
     Dates: start: 20230926
  12. CITALOPRAM [Concomitant]
     Active Substance: CITALOPRAM
     Indication: Depression
     Route: 048
     Dates: start: 2024

REACTIONS (3)
  - Folliculitis [Unknown]
  - Furuncle [Unknown]
  - Adverse event [Unknown]

NARRATIVE: CASE EVENT DATE: 20240618
